FAERS Safety Report 7623964-1 (Version None)
Quarter: 2011Q3

REPORT INFORMATION
  Report Type: 
  Country: None (occurrence: None)
  Receive Date: 20110720
  Receipt Date: 20110422
  Transmission Date: 20111222
  Serious: No
  Sender: FDA-Public Use
  Company Number: US-BRISTOL-MYERS SQUIBB COMPANY-15692759

PATIENT

DRUGS (1)
  1. YERVOY [Suspect]

REACTIONS (2)
  - BURNING SENSATION [None]
  - PAIN [None]
